FAERS Safety Report 19682582 (Version 4)
Quarter: 2022Q3

REPORT INFORMATION
  Report Type: Report from Study
  Country: US (occurrence: US)
  Receive Date: 20210810
  Receipt Date: 20220922
  Transmission Date: 20221026
  Serious: Yes (Hospitalization, Other)
  Sender: FDA-Public Use
  Company Number: US-TAKEDA-US202024517

PATIENT
  Age: 33 Year
  Sex: Male

DRUGS (46)
  1. IDURSULFASE [Suspect]
     Active Substance: IDURSULFASE
     Indication: Mucopolysaccharidosis II
     Dosage: 0.5 MILLIGRAM/KILOGRAM, 1X/WEEK
     Route: 042
     Dates: start: 20100204
  2. IDURSULFASE [Suspect]
     Active Substance: IDURSULFASE
     Dosage: 0.51 MILLIGRAM/KILOGRAM, 1X/WEEK
     Route: 042
     Dates: start: 20100528
  3. IDURSULFASE [Suspect]
     Active Substance: IDURSULFASE
     Dosage: 0.5 MILLIGRAM/KILOGRAM, 1X/WEEK
     Route: 042
     Dates: start: 20100719
  4. IDURSULFASE [Suspect]
     Active Substance: IDURSULFASE
     Dosage: 0.48 MILLIGRAM/KILOGRAM, 1X/WEEK
     Route: 042
     Dates: start: 20110926
  5. IDURSULFASE [Suspect]
     Active Substance: IDURSULFASE
     Dosage: 0.47 MILLIGRAM/KILOGRAM, 1X/WEEK
     Route: 042
     Dates: start: 20120326
  6. IDURSULFASE [Suspect]
     Active Substance: IDURSULFASE
     Dosage: 0.46 MILLIGRAM/KILOGRAM, 1X/WEEK
     Route: 042
     Dates: start: 20120726
  7. IDURSULFASE [Suspect]
     Active Substance: IDURSULFASE
     Dosage: 0.5 MILLIGRAM/KILOGRAM, 1/WEEK
     Route: 042
     Dates: start: 20150205
  8. IDURSULFASE [Suspect]
     Active Substance: IDURSULFASE
     Dosage: 0.5 MILLIGRAM/KILOGRAM, 1/WEEK
     Route: 042
     Dates: start: 20150205
  9. CLARITIN [Concomitant]
     Active Substance: LORATADINE
     Indication: Premedication
     Dosage: UNK
     Route: 048
  10. ACETAMINOPHEN [Concomitant]
     Active Substance: ACETAMINOPHEN
     Indication: Pain
     Dosage: UNK
     Route: 048
  11. LEXAPRO [Concomitant]
     Active Substance: ESCITALOPRAM OXALATE
     Indication: Depression
     Route: 048
  12. LEXAPRO [Concomitant]
     Active Substance: ESCITALOPRAM OXALATE
     Indication: Anxiety
  13. LISINOPRIL [Concomitant]
     Active Substance: LISINOPRIL
     Indication: Cardiovascular disorder
     Dosage: UNK
     Route: 048
     Dates: start: 2010, end: 2011
  14. LORAZEPAM [Concomitant]
     Active Substance: LORAZEPAM
     Indication: Anxiety
     Dosage: UNK
     Route: 048
     Dates: start: 2010, end: 2010
  15. OXYCODONE [Concomitant]
     Active Substance: OXYCODONE
     Indication: Pain
     Dosage: UNK
     Route: 048
     Dates: start: 2010, end: 20101209
  16. OXYCODONE [Concomitant]
     Active Substance: OXYCODONE
     Dosage: UNK
     Route: 048
     Dates: start: 20130821
  17. FUROSEMIDE [Concomitant]
     Active Substance: FUROSEMIDE
     Indication: Cardiovascular disorder
     Dosage: UNK
     Route: 048
     Dates: start: 20100603, end: 20101012
  18. POTASSIUM CHLORIDE [Concomitant]
     Active Substance: POTASSIUM CHLORIDE
     Indication: Diuretic therapy
     Dosage: UNK
     Route: 048
     Dates: start: 20100603, end: 2011
  19. FUROSEMIDE [Concomitant]
     Active Substance: FUROSEMIDE
     Indication: Cardiovascular disorder
     Dosage: UNK
     Route: 048
     Dates: start: 20101012, end: 20101021
  20. FUROSEMIDE [Concomitant]
     Active Substance: FUROSEMIDE
     Dosage: UNK
     Route: 065
     Dates: start: 20101021, end: 20101115
  21. FUROSEMIDE [Concomitant]
     Active Substance: FUROSEMIDE
     Dosage: UNK
     Route: 048
     Dates: start: 20111006, end: 20111201
  22. FUROSEMIDE [Concomitant]
     Active Substance: FUROSEMIDE
     Dosage: UNK
     Route: 048
     Dates: start: 20111215, end: 20120202
  23. FUROSEMIDE [Concomitant]
     Active Substance: FUROSEMIDE
     Dosage: UNK
     Route: 048
     Dates: start: 20120223, end: 20120307
  24. FUROSEMIDE [Concomitant]
     Active Substance: FUROSEMIDE
     Dosage: UNK
     Route: 048
     Dates: start: 20120325, end: 2012
  25. FUROSEMIDE [Concomitant]
     Active Substance: FUROSEMIDE
     Dosage: UNK
     Route: 042
     Dates: start: 20120327, end: 20120330
  26. FUROSEMIDE [Concomitant]
     Active Substance: FUROSEMIDE
     Dosage: UNK
     Route: 042
     Dates: start: 20130821
  27. OXYCONTIN [Concomitant]
     Active Substance: OXYCODONE HYDROCHLORIDE
     Indication: Pain
     Dosage: UNK
     Route: 048
     Dates: start: 20101012, end: 20101115
  28. SPIRONOLACTONE [Concomitant]
     Active Substance: SPIRONOLACTONE
     Indication: Cardiovascular disorder
     Dosage: UNK
     Route: 048
     Dates: start: 20101012, end: 20101021
  29. SPIRONOLACTONE [Concomitant]
     Active Substance: SPIRONOLACTONE
     Dosage: UNK
     Route: 048
     Dates: start: 20101115, end: 20110610
  30. SPIRONOLACTONE [Concomitant]
     Active Substance: SPIRONOLACTONE
     Dosage: UNK
     Route: 048
     Dates: start: 20120411
  31. FENTANYL [Concomitant]
     Active Substance: FENTANYL
     Indication: Pain
     Dosage: UNK
     Route: 065
     Dates: start: 20110324, end: 20110413
  32. MODAFINIL [Concomitant]
     Active Substance: MODAFINIL
     Indication: Somnolence
     Dosage: UNK
     Route: 048
     Dates: start: 20110324, end: 2011
  33. BACTRIM [Concomitant]
     Active Substance: SULFAMETHOXAZOLE\TRIMETHOPRIM
     Indication: Prophylaxis
     Dosage: UNK
     Route: 048
     Dates: start: 20110706, end: 20110713
  34. BACTRIM [Concomitant]
     Active Substance: SULFAMETHOXAZOLE\TRIMETHOPRIM
     Indication: Surgery
  35. BACTRIM [Concomitant]
     Active Substance: SULFAMETHOXAZOLE\TRIMETHOPRIM
     Indication: Infection
  36. BUMETANIDE [Concomitant]
     Active Substance: BUMETANIDE
     Indication: Cardiovascular disorder
     Dosage: UNK
     Route: 048
     Dates: start: 20120307, end: 20120322
  37. BUMETANIDE [Concomitant]
     Active Substance: BUMETANIDE
     Dosage: UNK
     Route: 048
     Dates: start: 20120322, end: 20120419
  38. BUMETANIDE [Concomitant]
     Active Substance: BUMETANIDE
     Dosage: UNK
     Route: 048
     Dates: start: 20120326, end: 20120327
  39. DOCUSATE [Concomitant]
     Active Substance: DOCUSATE
     Indication: Gastrointestinal disorder
     Dosage: UNK
     Route: 048
     Dates: start: 20120307, end: 2012
  40. LACTULOSE [Concomitant]
     Active Substance: LACTULOSE
     Indication: Hyperammonaemia
     Dosage: UNK
     Route: 048
     Dates: start: 20120331
  41. BUPHENYL [Concomitant]
     Active Substance: SODIUM PHENYLBUTYRATE
     Indication: Hyperammonaemia
     Dosage: UNK
     Route: 048
     Dates: start: 20120411, end: 2012
  42. RIFAXIMIN [Concomitant]
     Active Substance: RIFAXIMIN
     Indication: Infection
     Dosage: UNK
     Route: 048
     Dates: start: 20120411, end: 201204
  43. ALBUMIN HUMAN [Concomitant]
     Active Substance: ALBUMIN HUMAN
     Indication: Blood albumin decreased
     Dosage: UNK
     Route: 042
     Dates: start: 20120830
  44. NEURONTIN [Concomitant]
     Active Substance: GABAPENTIN
     Indication: Pain
     Dosage: UNK
     Route: 048
     Dates: start: 20140207
  45. VITAMIN D3 [Concomitant]
     Active Substance: CHOLECALCIFEROL
     Indication: Supplementation therapy
     Dosage: UNK
     Route: 048
     Dates: start: 20151027
  46. ALLOPURINOL [Concomitant]
     Active Substance: ALLOPURINOL
     Indication: Gout
     Dosage: UNK
     Route: 048
     Dates: start: 20170714

REACTIONS (1)
  - Cellulitis [Recovered/Resolved]

NARRATIVE: CASE EVENT DATE: 20150108
